FAERS Safety Report 6810339-8 (Version None)
Quarter: 2010Q2

REPORT INFORMATION
  Report Type: 
  Country: None (occurrence: None)
  Receive Date: 20100630
  Receipt Date: 20100617
  Transmission Date: 20101027
  Serious: Yes (Hospitalization)
  Sender: FDA-Public Use
  Company Number: PHHY2010US39938

PATIENT
  Sex: Male

DRUGS (1)
  1. RECLAST [Suspect]

REACTIONS (5)
  - ARTHRALGIA [None]
  - BACK PAIN [None]
  - BONE PAIN [None]
  - PAIN IN JAW [None]
  - RENAL PAIN [None]
